FAERS Safety Report 5613452-6 (Version None)
Quarter: 2008Q1

REPORT INFORMATION
  Report Type: 
  Country: None (occurrence: None)
  Receive Date: 20080129
  Receipt Date: 20080118
  Transmission Date: 20080703
  Serious: Yes (Hospitalization)
  Sender: FDA-Public Use
  Company Number: 163-C5013-07061465

PATIENT
  Age: 60 Year
  Sex: Male
  Weight: 97.7 kg

DRUGS (14)
  1. CC-5013 (LENALIDOMIDE) (CAPSULES) [Suspect]
     Indication: CHRONIC LYMPHOCYTIC LEUKAEMIA
     Dosage: 3 CAPS, DAILY, ORAL; 01 DOSE, ORAL; BASELINE DOSE, ORAL; ORAL
     Route: 048
     Dates: start: 20070430, end: 20070502
  2. CC-5013 (LENALIDOMIDE) (CAPSULES) [Suspect]
     Indication: CHRONIC LYMPHOCYTIC LEUKAEMIA
     Dosage: 3 CAPS, DAILY, ORAL; 01 DOSE, ORAL; BASELINE DOSE, ORAL; ORAL
     Route: 048
     Dates: start: 20070510, end: 20070513
  3. CC-5013 (LENALIDOMIDE) (CAPSULES) [Suspect]
     Indication: CHRONIC LYMPHOCYTIC LEUKAEMIA
     Dosage: 3 CAPS, DAILY, ORAL; 01 DOSE, ORAL; BASELINE DOSE, ORAL; ORAL
     Route: 048
     Dates: start: 20070525, end: 20070528
  4. CC-5013 (LENALIDOMIDE) (CAPSULES) [Suspect]
     Indication: CHRONIC LYMPHOCYTIC LEUKAEMIA
     Dosage: 3 CAPS, DAILY, ORAL; 01 DOSE, ORAL; BASELINE DOSE, ORAL; ORAL
     Route: 048
     Dates: start: 20070611, end: 20070612
  5. PEPCID [Concomitant]
  6. REGLAN [Concomitant]
  7. SPIRIVA [Concomitant]
  8. XOPENEX [Concomitant]
  9. ALLOPURINOL [Concomitant]
  10. MAG-OX (MAGNESIUM OXIDE) [Concomitant]
  11. MORPHINE [Concomitant]
  12. ADVAIR DISKUS 100/50 [Concomitant]
  13. ALBUTEROL [Concomitant]
  14. PROTONIX [Concomitant]

REACTIONS (26)
  - ANAEMIA [None]
  - ATELECTASIS [None]
  - BLOOD POTASSIUM INCREASED [None]
  - BRONCHIECTASIS [None]
  - CARDIOMEGALY [None]
  - CHOLECYSTECTOMY [None]
  - CHRONIC OBSTRUCTIVE PULMONARY DISEASE [None]
  - FEBRILE NEUTROPENIA [None]
  - HAEMODIALYSIS [None]
  - HEPATOSPLENOMEGALY [None]
  - HYDRONEPHROSIS [None]
  - LETHARGY [None]
  - LYMPHADENOPATHY [None]
  - MITRAL VALVE INCOMPETENCE [None]
  - OBSTRUCTIVE UROPATHY [None]
  - PERICARDIAL EFFUSION [None]
  - PLATELET COUNT DECREASED [None]
  - PLEURAL EFFUSION [None]
  - PULMONARY CONGESTION [None]
  - RENAL FAILURE ACUTE [None]
  - RESPIRATORY RATE INCREASED [None]
  - SINUS TACHYCARDIA [None]
  - SOMNOLENCE [None]
  - TRICUSPID VALVE INCOMPETENCE [None]
  - TUMOUR LYSIS SYNDROME [None]
  - URINARY RETENTION [None]
